FAERS Safety Report 4864169-7 (Version None)
Quarter: 2005Q4

REPORT INFORMATION
  Report Type: 
  Country: None (occurrence: None)
  Receive Date: 20051219
  Receipt Date: 20051207
  Transmission Date: 20060501
  Serious: Yes (Hospitalization, Other)
  Sender: FDA-Public Use
  Company Number: HQWYE701828SEP05

PATIENT
  Age: 54 Year
  Sex: Female
  Weight: 99.88 kg

DRUGS (4)
  1. PREMPRO [Suspect]
     Indication: HOT FLUSH
  2. PREMPRO [Suspect]
     Indication: MENOPAUSAL SYMPTOMS
  3. CYCRIN [Suspect]
  4. ESTRACE [Suspect]

REACTIONS (6)
  - BONE NEOPLASM MALIGNANT [None]
  - BREAST CANCER METASTATIC [None]
  - HEPATIC NEOPLASM MALIGNANT [None]
  - NEOPLASM RECURRENCE [None]
  - OESTROGEN RECEPTOR ASSAY POSITIVE [None]
  - PROGESTERONE RECEPTOR ASSAY POSITIVE [None]
